FAERS Safety Report 11294772 (Version 4)
Quarter: 2015Q3

REPORT INFORMATION
  Report Type: Spontaneous
  Country: JP (occurrence: JP)
  Receive Date: 20150723
  Receipt Date: 20150904
  Transmission Date: 20151125
  Serious: Yes (Life-Threatening)
  Sender: FDA-Public Use
  Company Number: JP-009507513-1507JPN004568

PATIENT
  Age: 67 Year
  Sex: Female

DRUGS (9)
  1. DIART [Suspect]
     Active Substance: AZOSEMIDE
     Dosage: 60 MG, QD (ONCE DAILY)
     Route: 048
     Dates: start: 20150408, end: 20150417
  2. LANSOPRAZOLE. [Concomitant]
     Active Substance: LANSOPRAZOLE
     Indication: PREMEDICATION
     Dosage: 15 MG, QD (ONCE DAILY)
     Route: 048
     Dates: start: 20150329, end: 20150329
  3. DIART [Suspect]
     Active Substance: AZOSEMIDE
     Indication: OEDEMA
     Dosage: 30 MG, QD (ONCE DAILY)
     Route: 048
     Dates: start: 20150406, end: 20150407
  4. CEFAZOLIN SODIUM. [Concomitant]
     Active Substance: CEFAZOLIN SODIUM
     Indication: PREMEDICATION
     Dosage: 1 G, BID (TWICE DAILY)
     Route: 041
     Dates: start: 20150330, end: 20150330
  5. DIAZOXIDE CAPSULES 25 MG ^MSD^ [Suspect]
     Active Substance: DIAZOXIDE
     Indication: HYPOGLYCAEMIA
     Dosage: 75 MG, BID (TWICE DAILY)
     Route: 048
     Dates: start: 20150331, end: 20150401
  6. DIAZOXIDE CAPSULES 25 MG ^MSD^ [Suspect]
     Active Substance: DIAZOXIDE
     Dosage: 150 MG, BID
     Route: 048
     Dates: start: 20150406, end: 20150417
  7. DIAZOXIDE CAPSULES 25 MG ^MSD^ [Suspect]
     Active Substance: DIAZOXIDE
     Dosage: 125 MG, BID (TWICE DAILY)
     Route: 048
     Dates: start: 20150401, end: 20150406
  8. MIYA-BM [Concomitant]
     Active Substance: CLOSTRIDIUM BUTYRICUM SPORES STRAIN M-55
     Indication: DIARRHOEA
     Dosage: 1 G, TID (THRICE DAILY)
     Route: 048
     Dates: start: 20150320, end: 20150324
  9. SOLDEM 3AG [Concomitant]
     Indication: HYPOGLYCAEMIA
     Dosage: 500 ML, Q4D (FOUR TIMES A DAY)
     Route: 041
     Dates: start: 20150318, end: 20150403

REACTIONS (5)
  - Leukopenia [Recovered/Resolved]
  - Rash [Unknown]
  - Thrombocytopenia [Recovered/Resolved]
  - Oedema [Unknown]
  - Anaemia [Recovered/Resolved]

NARRATIVE: CASE EVENT DATE: 20150402
